FAERS Safety Report 9197979 (Version 2)
Quarter: 2013Q2

REPORT INFORMATION
  Report Type: Spontaneous
  Country: DE (occurrence: DE)
  Receive Date: 20130328
  Receipt Date: 20130515
  Transmission Date: 20140414
  Serious: Yes (Life-Threatening, Other)
  Sender: FDA-Public Use
  Company Number: DE-B.I. PHARMACEUTICALS,INC./RIDGEFIELD-2013-DE-00975DE

PATIENT
  Sex: Male
  Weight: 70 kg

DRUGS (7)
  1. PRADAXA [Suspect]
     Indication: ATRIAL FIBRILLATION
     Dosage: 220 MG
  2. ASS [Suspect]
     Indication: CORONARY ARTERY DISEASE
     Dosage: 100 MG
  3. LISINOPRIL [Concomitant]
     Dosage: 20 MG
  4. BELOC ZOK MITE [Concomitant]
     Dosage: 2 ANZ
  5. PANTOPRAZOL [Concomitant]
     Dosage: 40 MG
  6. ATORVASTATIN [Concomitant]
     Dosage: 40 MG
  7. METOPROLOL [Concomitant]
     Dosage: 47.5 MG

REACTIONS (2)
  - Haemorrhage intracranial [Not Recovered/Not Resolved]
  - Cerebrovascular accident [Unknown]
